FAERS Safety Report 4814835-4 (Version None)
Quarter: 2005Q4

REPORT INFORMATION
  Report Type: 
  Country: None (occurrence: None)
  Receive Date: 20051028
  Receipt Date: 20051018
  Transmission Date: 20060501
  Serious: Yes (Other)
  Sender: FDA-Public Use
  Company Number: PHFR2005GB03450

PATIENT
  Sex: Female

DRUGS (1)
  1. ZOMETA [Suspect]
     Indication: MULTIPLE MYELOMA

REACTIONS (2)
  - JAW DISORDER [None]
  - OSTEONECROSIS [None]
